FAERS Safety Report 11359465 (Version 5)
Quarter: 2015Q4

REPORT INFORMATION
  Report Type: Spontaneous
  Country: US (occurrence: US)
  Receive Date: 20150807
  Receipt Date: 20151119
  Transmission Date: 20160304
  Serious: Yes (Hospitalization, Other)
  Sender: FDA-Public Use
  Company Number: US-PFIZER INC-2015253495

PATIENT
  Age: 75 Year
  Sex: Female
  Weight: 52 kg

DRUGS (7)
  1. ADVIL [Suspect]
     Active Substance: IBUPROFEN
     Indication: PAIN IN EXTREMITY
     Dosage: 400 MG, 1X/DAY (TAKE 2, 200 MG ADVIL TABLETS)
  2. ADVIL [Suspect]
     Active Substance: IBUPROFEN
     Indication: ARTHRALGIA
     Dosage: 400 MG, UNK (EVERY TWO DAYS)
  3. ADVIL [Suspect]
     Active Substance: IBUPROFEN
     Indication: ARTHRALGIA
  4. ADVIL [Suspect]
     Active Substance: IBUPROFEN
     Indication: HEADACHE
  5. CARTIA XT [Suspect]
     Active Substance: DILTIAZEM HYDROCHLORIDE
     Indication: ATRIAL FIBRILLATION
     Dosage: 240 MG, 1X/DAY
  6. ADVIL [Suspect]
     Active Substance: IBUPROFEN
     Indication: ARTHRITIS
  7. BAYER ASPIRIN [Concomitant]
     Active Substance: ASPIRIN
     Dosage: 81 MG, UNK

REACTIONS (7)
  - Loss of consciousness [Recovered/Resolved]
  - Atrial fibrillation [Not Recovered/Not Resolved]
  - Palpitations [Recovering/Resolving]
  - Blood pressure increased [Not Recovered/Not Resolved]
  - Dyskinesia [Unknown]
  - Intentional product use issue [Unknown]
  - Heart rate irregular [Unknown]

NARRATIVE: CASE EVENT DATE: 20150703
